FAERS Safety Report 18669157 (Version 1)
Quarter: 2020Q4

REPORT INFORMATION
  Report Type: Spontaneous
  Country: US (occurrence: US)
  Receive Date: 20201228
  Receipt Date: 20201228
  Transmission Date: 20210114
  Serious: No
  Sender: FDA-Public Use
  Company Number: US-BAYER-2020-277584

PATIENT
  Age: 71 Year
  Sex: Female

DRUGS (2)
  1. CLARITIN LIQUI-GELS [Suspect]
     Active Substance: LORATADINE
     Indication: NASOPHARYNGITIS
  2. CLARITIN LIQUI-GELS [Suspect]
     Active Substance: LORATADINE
     Indication: HEAD DISCOMFORT
     Dosage: 1 DF
     Route: 048
     Dates: start: 20201112, end: 20201112

REACTIONS (3)
  - Product use in unapproved indication [Unknown]
  - Vomiting [Recovered/Resolved]
  - Off label use [Unknown]

NARRATIVE: CASE EVENT DATE: 20201112
